FAERS Safety Report 21609892 (Version 1)
Quarter: 2022Q4

REPORT INFORMATION
  Report Type: Spontaneous
  Country: US (occurrence: None)
  Receive Date: 20221117
  Receipt Date: 20221117
  Transmission Date: 20230113
  Serious: Yes (Hospitalization)
  Sender: FDA-Public Use
  Company Number: None

PATIENT
  Age: 82 Year
  Sex: Male
  Weight: 103.5 kg

DRUGS (11)
  1. DURVALUMAB [Suspect]
     Active Substance: DURVALUMAB
  2. ALBUTEROL HFA [Concomitant]
  3. CHOLECALCIFEROL [Concomitant]
  4. EMPAGLIFLOZIN [Concomitant]
  5. FERROUS SULFATE [Concomitant]
  6. FINASTERIDE [Concomitant]
  7. FLUTICASONE [Concomitant]
  8. GABAPENTIN [Concomitant]
  9. INSULIN GLARGINE [Concomitant]
  10. LISINOPRIL [Concomitant]
  11. SIMVASTATIN [Concomitant]

REACTIONS (2)
  - Acute kidney injury [None]
  - Therapy interrupted [None]

NARRATIVE: CASE EVENT DATE: 20221115
